FAERS Safety Report 4466818-4 (Version None)
Quarter: 2004Q4

REPORT INFORMATION
  Report Type: 
  Country: None (occurrence: None)
  Receive Date: 20041001
  Receipt Date: 20041001
  Transmission Date: 20050328
  Serious: Yes (Death)
  Sender: FDA-Public Use
  Company Number: None

PATIENT
  Sex: Male
  Weight: 73.0291 kg

DRUGS (2)
  1. FLOMAX [Suspect]
     Indication: BENIGN PROSTATIC HYPERPLASIA
     Dosage: TWO DAILY ORAL
     Route: 048
     Dates: start: 20030103, end: 20040713
  2. FLOMAX [Suspect]
     Indication: BENIGN PROSTATIC HYPERPLASIA
     Dosage: TWO DAILY ORAL
     Route: 048
     Dates: start: 20030103, end: 20040713

REACTIONS (2)
  - CARDIAC ARREST [None]
  - TOXICOLOGIC TEST ABNORMAL [None]
